FAERS Safety Report 16372512 (Version 1)
Quarter: 2019Q2

REPORT INFORMATION
  Report Type: Spontaneous
  Country: ES (occurrence: ES)
  Receive Date: 20190530
  Receipt Date: 20190530
  Transmission Date: 20190711
  Serious: Yes (Other)
  Sender: FDA-Public Use
  Company Number: ES-MYLANLABS-2019M1049431

PATIENT
  Age: 29 Year
  Sex: Female

DRUGS (8)
  1. METHOTREXATE. [Suspect]
     Active Substance: METHOTREXATE
     Indication: BURKITT^S LYMPHOMA
     Dosage: 15 MILLIGRAM, CYCLE (CMED) (DAY 1) (M-COAP) (DAY 3)
     Route: 037
  2. CYTARABINE. [Suspect]
     Active Substance: CYTARABINE
     Indication: BURKITT^S LYMPHOMA
     Dosage: 500 MILLIGRAM/SQ. METER, CYCLE (M-COAP) (DAY 2)
     Route: 042
  3. IMIPENEM [Concomitant]
     Active Substance: IMIPENEM
     Dosage: 500 MG, UNK (EVERY 6 HOURS)
     Route: 042
  4. CYTARABINE. [Suspect]
     Active Substance: CYTARABINE
     Dosage: 100 MILLIGRAM, CYCLE (HOAP-BLEO) (DAY 1)
     Route: 037
  5. METHOTREXATE. [Suspect]
     Active Substance: METHOTREXATE
     Dosage: 1 CYCLICAL (M-COAP) (1 G/M2 DAY 3) (CMED) (1 G/M2 DAY 1)
     Route: 042
  6. CYTARABINE. [Suspect]
     Active Substance: CYTARABINE
     Dosage: 20 MILLIGRAM/SQ. METER, CYCLE (HOAP-BLEO) (EVERY 8 HOURS, DAYS 1 TO 5)
     Route: 058
  7. HYDROCORTISONE. [Concomitant]
     Active Substance: HYDROCORTISONE
     Dosage: 100 MG, CYCLIC (DAY 1) (THIRD DAY OF THE FIRST CYCLE)
     Route: 037
  8. VINCRISTINE SULFATE. [Suspect]
     Active Substance: VINCRISTINE SULFATE
     Indication: BURKITT^S LYMPHOMA
     Dosage: 1.4 MILLIGRAM/SQ. METER, CYCLE (M-COAP) (DAYS 1 AND 8) (HOAP-BLEO) (DAYS 1 AND 8)
     Route: 042

REACTIONS (3)
  - Neurotoxicity [Unknown]
  - Tumour lysis syndrome [Unknown]
  - Blindness transient [Unknown]
